FAERS Safety Report 16141418 (Version 2)
Quarter: 2019Q2

REPORT INFORMATION
  Report Type: Spontaneous
  Country: US (occurrence: US)
  Receive Date: 20190401
  Receipt Date: 20190402
  Transmission Date: 20190711
  Serious: Yes (Other)
  Sender: FDA-Public Use
  Company Number: US-PFIZER INC-2019135174

PATIENT
  Age: 11 Year
  Sex: Male
  Weight: 37.19 kg

DRUGS (1)
  1. EFFEXOR XR [Suspect]
     Active Substance: VENLAFAXINE HYDROCHLORIDE
     Indication: BEHAVIOUR DISORDER
     Dosage: 150 MG, DAILY (TABLETS-2 TAKEN BY MOUTH DAILY (150MG TOTAL DAILY DOSAGE))
     Route: 048

REACTIONS (1)
  - Drug ineffective [Unknown]
